FAERS Safety Report 9498454 (Version 1)
Quarter: 2013Q3

REPORT INFORMATION
  Report Type: Spontaneous
  Country: US (occurrence: None)
  Receive Date: 20130903
  Receipt Date: 20130903
  Transmission Date: 20140515
  Serious: Yes (Life-Threatening, Hospitalization)
  Sender: FDA-Public Use
  Company Number: None

PATIENT
  Sex: Male
  Weight: 19.5 kg

DRUGS (1)
  1. STELARA [Suspect]
     Indication: PSORIASIS
     Dosage: INJECT 1ML SUBCUTANEOUSLY EVERY 3 MONTHS
     Route: 058
     Dates: start: 20110726

REACTIONS (1)
  - Myocardial infarction [None]
